FAERS Safety Report 16763005 (Version 1)
Quarter: 2019Q3

REPORT INFORMATION
  Report Type: Spontaneous
  Country: US (occurrence: US)
  Receive Date: 20190902
  Receipt Date: 20190902
  Transmission Date: 20191005
  Serious: No
  Sender: FDA-Public Use
  Company Number: US-AMGEN-USASP2019138325

PATIENT
  Age: 47 Year
  Sex: Female

DRUGS (4)
  1. CYCLOSPORINE. [Concomitant]
     Active Substance: CYCLOSPORINE
     Dosage: UNK
  2. ACITRETIN. [Concomitant]
     Active Substance: ACITRETIN
     Dosage: UNK
  3. AZATHIOPRINE. [Concomitant]
     Active Substance: AZATHIOPRINE
     Dosage: UNK
  4. ETANERCEPT [Suspect]
     Active Substance: ETANERCEPT
     Indication: BENIGN FAMILIAL PEMPHIGUS
     Dosage: UNK
     Route: 065

REACTIONS (1)
  - Off label use [Unknown]
